FAERS Safety Report 12547444 (Version 1)
Quarter: 2016Q3

REPORT INFORMATION
  Report Type: Spontaneous
  Country: GB (occurrence: GB)
  Receive Date: 20160711
  Receipt Date: 20160711
  Transmission Date: 20161109
  Serious: Yes (Other)
  Sender: FDA-Public Use
  Company Number: GB-JNJFOC-20160627315

PATIENT
  Age: 8 Week
  Sex: Male

DRUGS (1)
  1. CALPOL [Suspect]
     Active Substance: ACETAMINOPHEN
     Indication: PRODUCT USED FOR UNKNOWN INDICATION
     Route: 048
     Dates: start: 20160629

REACTIONS (4)
  - Dyspnoea [Unknown]
  - Foreign body [Unknown]
  - Syringe issue [Unknown]
  - Choking [Unknown]

NARRATIVE: CASE EVENT DATE: 20160629
